FAERS Safety Report 19450768 (Version 2)
Quarter: 2021Q2

REPORT INFORMATION
  Report Type: Spontaneous
  Country: US (occurrence: NP)
  Receive Date: 20210622
  Receipt Date: 20210630
  Transmission Date: 20210717
  Serious: Yes (Hospitalization, Other)
  Sender: FDA-Public Use
  Company Number: NP-BRISTOL-MYERS SQUIBB COMPANY-BMS-2021-059592

PATIENT
  Age: 26 Year
  Sex: Male

DRUGS (1)
  1. SPRYCEL [Suspect]
     Active Substance: DASATINIB
     Indication: CHRONIC MYELOID LEUKAEMIA
     Dosage: 1 00MG (2 X 50MG TABLETS)
     Route: 065

REACTIONS (2)
  - Therapy non-responder [Unknown]
  - Jaundice [Unknown]

NARRATIVE: CASE EVENT DATE: 202106
